FAERS Safety Report 25010389 (Version 2)
Quarter: 2025Q1

REPORT INFORMATION
  Report Type: Report from Study
  Country: US (occurrence: US)
  Receive Date: 20250225
  Receipt Date: 20250313
  Transmission Date: 20250409
  Serious: Yes (Hospitalization, Other)
  Sender: UCB
  Company Number: US-UCBSA-2025010083

PATIENT
  Age: 82 Year
  Sex: Male

DRUGS (2)
  1. LACOSAMIDE [Suspect]
     Active Substance: LACOSAMIDE
     Indication: Seizure
     Dosage: 200 MILLIGRAM, 2X/DAY (BID)
     Route: 048
  2. LACOSAMIDE [Suspect]
     Active Substance: LACOSAMIDE
     Dosage: 250 MILLIGRAM, 2X/DAY (BID)
     Route: 048

REACTIONS (8)
  - Hospitalisation [Not Recovered/Not Resolved]
  - Spinal operation [Recovered/Resolved]
  - Postoperative thrombosis [Recovered/Resolved]
  - Thrombectomy [Recovered/Resolved]
  - Thrombosis [Recovered/Resolved]
  - Seizure [Recovered/Resolved]
  - Gait inability [Not Recovered/Not Resolved]
  - Back pain [Not Recovered/Not Resolved]

NARRATIVE: CASE EVENT DATE: 20240801
